FAERS Safety Report 15463674 (Version 1)
Quarter: 2018Q4

REPORT INFORMATION
  Report Type: Spontaneous
  Country: US (occurrence: US)
  Receive Date: 20181004
  Receipt Date: 20181004
  Transmission Date: 20190204
  Serious: No
  Sender: FDA-Public Use
  Company Number: US-MYLANLABS-2018M1067760

PATIENT
  Age: 68 Year
  Sex: Female
  Weight: 82 kg

DRUGS (1)
  1. LIDOCAINE PATCH [Suspect]
     Active Substance: LIDOCAINE
     Indication: MUSCULOSKELETAL PAIN
     Route: 003
     Dates: start: 20180912, end: 20180913

REACTIONS (3)
  - Product quality issue [Unknown]
  - Off label use [Unknown]
  - Product adhesion issue [Not Recovered/Not Resolved]

NARRATIVE: CASE EVENT DATE: 20180912
